FAERS Safety Report 12106348 (Version 1)
Quarter: 2016Q1

REPORT INFORMATION
  Report Type: Spontaneous
  Country: US (occurrence: US)
  Receive Date: 20160223
  Receipt Date: 20160223
  Transmission Date: 20160526
  Serious: Yes (Death, Other)
  Sender: FDA-Public Use
  Company Number: US-TEVA-636988USA

PATIENT

DRUGS (4)
  1. THIOGUANINE [Suspect]
     Active Substance: THIOGUANINE
     Indication: ACUTE PROMYELOCYTIC LEUKAEMIA
     Route: 065
  2. TRISENOX [Suspect]
     Active Substance: ARSENIC TRIOXIDE
     Indication: ACUTE PROMYELOCYTIC LEUKAEMIA
     Route: 065
  3. ETOPOSIDE. [Suspect]
     Active Substance: ETOPOSIDE
     Indication: ACUTE PROMYELOCYTIC LEUKAEMIA
     Route: 065
  4. PREDNISOLONE. [Suspect]
     Active Substance: PREDNISOLONE
     Route: 048

REACTIONS (1)
  - Central nervous system haemorrhage [Fatal]
